FAERS Safety Report 25496745 (Version 1)
Quarter: 2025Q3

REPORT INFORMATION
  Report Type: Spontaneous
  Country: GB (occurrence: None)
  Receive Date: 20250701
  Receipt Date: 20250701
  Transmission Date: 20251020
  Serious: Yes (Other)
  Sender: Alvotech
  Company Number: None

PATIENT
  Age: 57 Year
  Sex: Female

DRUGS (3)
  1. ADALIMUMAB [Suspect]
     Active Substance: ADALIMUMAB
     Indication: Product used for unknown indication
     Route: 065
  2. USTEKINUMAB [Suspect]
     Active Substance: USTEKINUMAB
     Indication: Product used for unknown indication
     Route: 065
  3. VEDOLIZUMAB [Suspect]
     Active Substance: VEDOLIZUMAB
     Indication: Product used for unknown indication

REACTIONS (11)
  - Dyspnoea [Unknown]
  - Anaemia [Unknown]
  - Influenza [Unknown]
  - Malaise [Unknown]
  - Urticaria [Unknown]
  - Hot flush [Unknown]
  - Weight decreased [Unknown]
  - Hypokinesia [Unknown]
  - Pain [Unknown]
  - Poor quality sleep [Unknown]
  - Rash [Unknown]
